FAERS Safety Report 25949165 (Version 1)
Quarter: 2025Q4

REPORT INFORMATION
  Report Type: Spontaneous
  Country: GB (occurrence: GB)
  Receive Date: 20251022
  Receipt Date: 20251022
  Transmission Date: 20260117
  Serious: Yes (Other)
  Sender: ABBVIE
  Company Number: GB-ABBVIE-6513279

PATIENT
  Sex: Female

DRUGS (2)
  1. OZURDEX [Suspect]
     Active Substance: DEXAMETHASONE
     Indication: Diabetic retinal oedema
     Dosage: TIME INTERVAL: AS NECESSARY
     Route: 050
  2. OZURDEX [Suspect]
     Active Substance: DEXAMETHASONE
     Indication: Diabetic retinopathy

REACTIONS (5)
  - Blindness [Unknown]
  - Retinal detachment [Unknown]
  - Endophthalmitis [Unknown]
  - Product contamination [Unknown]
  - Poor quality product administered [Unknown]
